FAERS Safety Report 12599357 (Version 1)
Quarter: 2016Q3

REPORT INFORMATION
  Report Type: Report from Study
  Country: CA (occurrence: CA)
  Receive Date: 20160727
  Receipt Date: 20160727
  Transmission Date: 20161109
  Serious: Yes (Other)
  Sender: FDA-Public Use
  Company Number: CA-SA-2016SA134810

PATIENT
  Age: 78 Year
  Sex: Female

DRUGS (4)
  1. CAPRELSA [Suspect]
     Active Substance: VANDETANIB
     Indication: MEDULLARY THYROID CANCER
     Route: 048
     Dates: start: 20150625
  2. MINOCYCLINE [Concomitant]
     Active Substance: MINOCYCLINE\MINOCYCLINE HYDROCHLORIDE
  3. IMODIUM [Concomitant]
     Active Substance: LOPERAMIDE HYDROCHLORIDE
  4. MOMETASONE FUROATE. [Concomitant]
     Active Substance: MOMETASONE FUROATE

REACTIONS (3)
  - Fatigue [Unknown]
  - Hypersomnia [Unknown]
  - Diarrhoea [Not Recovered/Not Resolved]
